FAERS Safety Report 11785333 (Version 1)
Quarter: 2015Q4

REPORT INFORMATION
  Report Type: Report from Study
  Country: AR (occurrence: AR)
  Receive Date: 20151130
  Receipt Date: 20151130
  Transmission Date: 20160305
  Serious: Yes (Other)
  Sender: FDA-Public Use
  Company Number: PHHY2015AR150230

PATIENT
  Age: 76 Year
  Sex: Male

DRUGS (5)
  1. ONBREZ BREEZHALER [Suspect]
     Active Substance: INDACATEROL
     Indication: CHRONIC OBSTRUCTIVE PULMONARY DISEASE
     Route: 065
  2. FORMOTEROL [Concomitant]
     Active Substance: FORMOTEROL
     Indication: PRODUCT USED FOR UNKNOWN INDICATION
     Route: 065
  3. SALBUTAMOL [Concomitant]
     Active Substance: ALBUTEROL
     Indication: PRODUCT USED FOR UNKNOWN INDICATION
     Route: 065
  4. ONBREZ BREEZHALER [Suspect]
     Active Substance: INDACATEROL
     Indication: SEASONAL ALLERGY
  5. BUDESONIDE. [Concomitant]
     Active Substance: BUDESONIDE
     Indication: PRODUCT USED FOR UNKNOWN INDICATION
     Route: 065

REACTIONS (23)
  - Nerve injury [Recovered/Resolved]
  - Vocal cord disorder [Not Recovered/Not Resolved]
  - Muscle injury [Recovered/Resolved]
  - Eating disorder [Recovered/Resolved]
  - Depression [Recovered/Resolved]
  - Bronchospasm [Recovered/Resolved]
  - Accident [Unknown]
  - Secretion discharge [Unknown]
  - Sneezing [Recovered/Resolved]
  - Bronchitis [Recovered/Resolved]
  - Body temperature abnormal [Recovered/Resolved]
  - Dyspnoea [Recovered/Resolved]
  - Productive cough [Recovered/Resolved]
  - Pain [Recovering/Resolving]
  - Muscle disorder [Unknown]
  - Weight decreased [Recovered/Resolved]
  - Cough [Unknown]
  - Abasia [Recovered/Resolved]
  - Lung disorder [Unknown]
  - Off label use [Unknown]
  - Bronchospasm [Recovered/Resolved with Sequelae]
  - Nervous system disorder [Unknown]
  - Anxiety [Recovered/Resolved]

NARRATIVE: CASE EVENT DATE: 20150825
